FAERS Safety Report 5854752-4 (Version None)
Quarter: 2008Q3

REPORT INFORMATION
  Report Type: 
  Country: None (occurrence: None)
  Receive Date: 20080822
  Receipt Date: 20080109
  Transmission Date: 20090109
  Serious: No
  Sender: FDA-Public Use
  Company Number: US-ABBOTT-08P-163-0433208-00

PATIENT
  Sex: Female
  Weight: 76.726 kg

DRUGS (3)
  1. SYNTHROID [Suspect]
     Indication: HORMONE REPLACEMENT THERAPY
     Route: 048
     Dates: start: 20070828, end: 20070924
  2. SYNTHROID [Suspect]
     Dosage: 88MCG
     Route: 048
     Dates: start: 20070924, end: 20071109
  3. SYNTHROID [Suspect]
     Dosage: 88/100MCG
     Route: 048
     Dates: start: 20071109

REACTIONS (1)
  - BLOOD THYROID STIMULATING HORMONE ABNORMAL [None]
